FAERS Safety Report 18037967 (Version 1)
Quarter: 2020Q3

REPORT INFORMATION
  Report Type: Report from Study
  Country: JP (occurrence: JP)
  Receive Date: 20200717
  Receipt Date: 20200717
  Transmission Date: 20201103
  Serious: Yes (Death, Life-Threatening, Hospitalization, Other)
  Sender: FDA-Public Use
  Company Number: JP-ASTELLAS-2018JP015766

PATIENT
  Age: 81 Year
  Sex: Male
  Weight: 45 kg

DRUGS (12)
  1. FUNGUARD [Concomitant]
     Active Substance: MICAFUNGIN SODIUM
     Indication: FEBRILE NEUTROPENIA
     Dosage: UNK UNK, ONCE DAILY
     Route: 041
     Dates: start: 20180727
  2. VASOLAN                            /00014302/ [Concomitant]
     Active Substance: VERAPAMIL HYDROCHLORIDE
     Indication: ATRIAL FIBRILLATION
     Dosage: 40 MG, TWICE DAILY AFTER BREAKFAST AND SUPPER
     Route: 048
     Dates: start: 20180702
  3. AS3156378 [Suspect]
     Active Substance: AZACITIDINE
     Indication: ACUTE MYELOID LEUKAEMIA
     Dosage: 75 MG/M2, ONCE DAILY, FOR 7 DAYS EVERY 4 WEEKS. SUBCUTANEOUS OR DRIP INFUSION
     Route: 065
     Dates: start: 20180618, end: 20180730
  4. ASPIRIN. [Concomitant]
     Active Substance: ASPIRIN
     Indication: THROMBOSIS PROPHYLAXIS
     Dosage: 0.1 G, ONCE DAILY AFTER BREAKFAST
     Route: 048
     Dates: start: 20180629, end: 20180817
  5. MUCOFILIN [Concomitant]
     Indication: PNEUMONIA
     Route: 055
     Dates: start: 20180730
  6. ASP2215 [Suspect]
     Active Substance: GILTERITINIB
     Indication: ACUTE MYELOID LEUKAEMIA
     Dosage: 120 MG, ONCE DAILY, 2 HOURS AFTER EATING
     Route: 048
     Dates: start: 20180618, end: 20180716
  7. ASP2215 [Suspect]
     Active Substance: GILTERITINIB
     Dosage: 80 MG, ONCE DAILY, 2 HOURS AFTER EATING
     Route: 048
     Dates: start: 20180724, end: 20180823
  8. MIYA?BM [Concomitant]
     Active Substance: CLOSTRIDIUM BUTYRICUM SPORES STRAIN M-55
     Indication: BOWEL MOVEMENT IRREGULARITY
     Dosage: 40 MG, TWICE DAILY, AFTER BREAKFAST AND SUPPER
     Route: 048
     Dates: start: 20180612
  9. TAZOPIPE [Concomitant]
     Active Substance: PIPERACILLIN SODIUM\TAZOBACTAM SODIUM
     Indication: FEBRILE NEUTROPENIA
     Dosage: UNK UNK, THRICE DAILY
     Route: 041
     Dates: start: 20180810, end: 20180817
  10. VANCOMYCIN                         /00314402/ [Concomitant]
     Active Substance: VANCOMYCIN
     Indication: FEBRILE NEUTROPENIA
     Dosage: UNKNOWN DOSE, TWICE DAILY, EVERY 12 HOURS
     Route: 041
     Dates: start: 20180816
  11. REBAMIPIDE [Concomitant]
     Active Substance: REBAMIPIDE
     Indication: GASTRITIS PROPHYLAXIS
     Dosage: 100 MG, TWICE DAILY , AFTER BREAKFAST AND SUPPER
     Route: 048
     Dates: start: 20180612
  12. MUCODYNE [Concomitant]
     Active Substance: CARBOCYSTEINE
     Indication: PNEUMONIA
     Dosage: 1000 MG, TWICE DAILY , AFTER BREAKFAST AND SUPPER
     Route: 048
     Dates: start: 20180612

REACTIONS (3)
  - Febrile neutropenia [Not Recovered/Not Resolved]
  - Atrial fibrillation [Not Recovered/Not Resolved]
  - Pneumonia [Fatal]

NARRATIVE: CASE EVENT DATE: 20180625
